FAERS Safety Report 22312423 (Version 2)
Quarter: 2024Q3

REPORT INFORMATION
  Report Type: Report from Study
  Country: US (occurrence: US)
  Receive Date: 20230512
  Receipt Date: 20240801
  Transmission Date: 20241017
  Serious: Yes (Other)
  Sender: NOVARTIS
  Company Number: US-002147023-NVSC2023US104974

PATIENT
  Sex: Male
  Weight: 124.74 kg

DRUGS (2)
  1. COSENTYX [Suspect]
     Active Substance: SECUKINUMAB
     Indication: Psoriasis
     Dosage: 300 MG (150 MG/ ML2 PENS)
     Route: 058
  2. ALCOHOL [Suspect]
     Active Substance: ALCOHOL
     Indication: Psoriasis
     Dosage: UNK
     Route: 065

REACTIONS (9)
  - Psoriatic arthropathy [Unknown]
  - Arthralgia [Unknown]
  - Stress [Unknown]
  - Psoriasis [Unknown]
  - Pruritus [Unknown]
  - Skin plaque [Unknown]
  - Skin exfoliation [Unknown]
  - Dry skin [Unknown]
  - Drug ineffective [Unknown]
